FAERS Safety Report 7878608-0 (Version None)
Quarter: 2011Q4

REPORT INFORMATION
  Report Type: 
  Country: None (occurrence: None)
  Receive Date: 20111101
  Receipt Date: 20111101
  Transmission Date: 20120403
  Serious: Yes (Other)
  Sender: FDA-Public Use
  Company Number: None

PATIENT
  Age: 55 Year
  Sex: Female
  Weight: 53.07 kg

DRUGS (2)
  1. CLOTRMAZOLE BETAMETHASONE [Concomitant]
     Indication: SKIN DISORDER
     Dosage: AS NEEDED
     Route: 061
     Dates: start: 19850101, end: 20110101
  2. TRIAMCINOLONE [Suspect]
     Indication: ECZEMA
     Dosage: AS NEEDED
     Route: 061
     Dates: start: 19850101, end: 20110101

REACTIONS (24)
  - RASH [None]
  - SECRETION DISCHARGE [None]
  - URTICARIA [None]
  - SWEAT GLAND DISORDER [None]
  - IMMUNE SYSTEM DISORDER [None]
  - DRUG WITHDRAWAL SYNDROME [None]
  - ADRENAL DISORDER [None]
  - TOXICITY TO VARIOUS AGENTS [None]
  - PRURITUS [None]
  - DRUG EFFECT DECREASED [None]
  - SKIN EXFOLIATION [None]
  - INSOMNIA [None]
  - NERVE INJURY [None]
  - HORMONE LEVEL ABNORMAL [None]
  - INFLAMMATION [None]
  - GENERALISED OEDEMA [None]
  - PAIN [None]
  - PAIN OF SKIN [None]
  - SOCIAL PROBLEM [None]
  - DRUG DEPENDENCE [None]
  - SKIN MASS [None]
  - SKIN BURNING SENSATION [None]
  - HYPERSENSITIVITY [None]
  - NEURALGIA [None]
